FAERS Safety Report 4679845-9 (Version None)
Quarter: 2005Q2

REPORT INFORMATION
  Report Type: 
  Country: None (occurrence: None)
  Receive Date: 20050602
  Receipt Date: 20050201
  Transmission Date: 20051028
  Serious: No
  Sender: FDA-Public Use
  Company Number: US-GLAXOSMITHKLINE-A0543312A

PATIENT
  Age: 47 Year
  Sex: Female

DRUGS (2)
  1. AUGMENTIN [Suspect]
     Indication: LYME DISEASE
     Dosage: 1TAB TWICE PER DAY
     Route: 048
     Dates: start: 20040515, end: 20040726
  2. ZITHROMAX [Concomitant]
     Dosage: 500MG PER DAY

REACTIONS (3)
  - NAUSEA [None]
  - PARAESTHESIA [None]
  - STOMACH DISCOMFORT [None]
